FAERS Safety Report 12509090 (Version 6)
Quarter: 2016Q4

REPORT INFORMATION
  Report Type: Spontaneous
  Country: US (occurrence: US)
  Receive Date: 20160629
  Receipt Date: 20161031
  Transmission Date: 20170207
  Serious: Yes (Hospitalization)
  Sender: FDA-Public Use
  Company Number: US-PFIZER INC-2015032969

PATIENT
  Age: 59 Year
  Sex: Male
  Weight: 95 kg

DRUGS (15)
  1. LYRICA [Suspect]
     Active Substance: PREGABALIN
     Indication: NEURALGIA
     Dosage: 150 MG, 3X/DAY
     Route: 048
  2. VALIUM [Concomitant]
     Active Substance: DIAZEPAM
     Dosage: 10 MG, 3X/DAY
     Route: 048
  3. DILAUDID [Concomitant]
     Active Substance: HYDROMORPHONE HYDROCHLORIDE
     Indication: BREAKTHROUGH PAIN
     Dosage: 4 MG, 4X/DAY
     Route: 048
  4. CARAFATE [Concomitant]
     Active Substance: SUCRALFATE
     Dosage: 1 G, 2X/DAY (30 MIN AC MEAL AND BEDTIME)
     Route: 048
  5. NORCO [Concomitant]
     Active Substance: ACETAMINOPHEN\HYDROCODONE BITARTRATE
     Indication: PAIN
     Dosage: 1-2 TABLET,AS NEEDED (HYDROCODONE BITARTRATE 5 MG, PARACETAMOL 325 MG)
     Route: 048
  6. NORCO [Concomitant]
     Active Substance: ACETAMINOPHEN\HYDROCODONE BITARTRATE
     Indication: MIGRAINE
  7. ZOVIRAX [Concomitant]
     Active Substance: ACYCLOVIR
     Dosage: 6X PER DAY AS NEEDED
  8. FLUOXETINE HCL [Concomitant]
     Active Substance: FLUOXETINE HYDROCHLORIDE
     Dosage: 40 MG, 1X/DAY (QAM)
     Route: 048
  9. PRILOSEC [Concomitant]
     Active Substance: OMEPRAZOLE MAGNESIUM
     Dosage: 20 MG, 2X/DAY
     Route: 048
     Dates: end: 20160805
  10. LYRICA [Suspect]
     Active Substance: PREGABALIN
     Indication: FIBROMYALGIA
     Dosage: 150 MG, 2X/DAY
     Route: 048
  11. PROSCAR [Concomitant]
     Active Substance: FINASTERIDE
     Indication: PROSTATIC DISORDER
     Dosage: UNK
     Dates: end: 20160805
  12. LYRICA [Suspect]
     Active Substance: PREGABALIN
     Indication: PROSTATITIS
     Dosage: 150 MG, 2X/DAY
     Route: 048
     Dates: start: 2012
  13. OXYBUTYNIN CHLORIDE. [Concomitant]
     Active Substance: OXYBUTYNIN CHLORIDE
     Dosage: 5 MG, UNK
     Route: 048
     Dates: end: 201607
  14. HYTRIN [Concomitant]
     Active Substance: TERAZOSIN HYDROCHLORIDE
     Dosage: 5 MG, 1X/DAY (QHS /HS)
     Route: 048
     Dates: end: 20160805
  15. TOPIRAMATE. [Concomitant]
     Active Substance: TOPIRAMATE
     Dosage: 50 MG, 1X/DAY (PM)
     Route: 048

REACTIONS (3)
  - Mobility decreased [Unknown]
  - Arthritis [Unknown]
  - Intervertebral disc protrusion [Unknown]
